FAERS Safety Report 20911169 (Version 1)
Quarter: 2022Q2

REPORT INFORMATION
  Report Type: Spontaneous
  Country: FR (occurrence: FR)
  Receive Date: 20220603
  Receipt Date: 20220603
  Transmission Date: 20220721
  Serious: Yes (Death)
  Sender: FDA-Public Use
  Company Number: None

PATIENT
  Age: 49 Year
  Sex: Female

DRUGS (10)
  1. MIRTAZAPINE [Suspect]
     Active Substance: MIRTAZAPINE
     Indication: Product used for unknown indication
     Dosage: UNKNOWN, THERAPY START DATE :  ASKED BUT UNKNOWN
     Route: 065
     Dates: end: 202011
  2. BROMAZEPAM [Suspect]
     Active Substance: BROMAZEPAM
     Indication: Product used for unknown indication
     Dosage: UNKNOWN, THERAPY START DATE :  ASKED BUT UNKNOWN
     Route: 065
     Dates: end: 202011
  3. BUPRENORPHINE [Suspect]
     Active Substance: BUPRENORPHINE
     Indication: Product used for unknown indication
     Dosage: UNKNOWN, THERAPY START DATE :  ASKED BUT UNKNOWN
     Route: 065
     Dates: end: 202011
  4. CITALOPRAM [Suspect]
     Active Substance: CITALOPRAM HYDROBROMIDE
     Indication: Product used for unknown indication
     Dosage: UNKNOWN, THERAPY START DATE :  ASKED BUT UNKNOWN
     Route: 065
     Dates: end: 202011
  5. CANNABIS SATIVA SUBSP. INDICA TOP [Suspect]
     Active Substance: CANNABIS SATIVA SUBSP. INDICA TOP
     Dosage: UNKNOWN, THERAPY START DATE :  ASKED BUT UNKNOWN
     Route: 065
     Dates: end: 202011
  6. COCAINE [Suspect]
     Active Substance: COCAINE
     Dosage: UNKNOWN, THERAPY START DATE :  ASKED BUT UNKNOWN
     Route: 065
     Dates: end: 202011
  7. ALCOHOL [Suspect]
     Active Substance: ALCOHOL
     Dosage: UNKNOWN, THERAPY START DATE :  ASKED BUT UNKNOWN
     Route: 065
     Dates: end: 202011
  8. CYAMEMAZINE [Suspect]
     Active Substance: CYAMEMAZINE
     Indication: Product used for unknown indication
     Dosage: UNKNOWN, THERAPY START DATE :  ASKED BUT UNKNOWN
     Route: 065
     Dates: end: 202011
  9. IMOVANE [Suspect]
     Active Substance: ZOPICLONE
     Indication: Product used for unknown indication
     Dosage: UNKNOWN, THERAPY START DATE :  ASKED BUT UNKNOWN
     Route: 065
     Dates: end: 202011
  10. OXAZEPAM [Suspect]
     Active Substance: OXAZEPAM
     Indication: Product used for unknown indication
     Dosage: UNKNOWN, THERAPY START DATE :  ASKED BUT UNKNOWN
     Route: 065
     Dates: end: 202011

REACTIONS (1)
  - Drug abuse [Fatal]
